FAERS Safety Report 15541180 (Version 1)
Quarter: 2018Q4

REPORT INFORMATION
  Report Type: Spontaneous
  Country: AT (occurrence: AT)
  Receive Date: 20181023
  Receipt Date: 20181023
  Transmission Date: 20190205
  Serious: Yes (Death, Hospitalization)
  Sender: FDA-Public Use
  Company Number: AT-EMD SERONO-9048086

PATIENT
  Age: 75 Year
  Sex: Male

DRUGS (2)
  1. BAVENCIO [Suspect]
     Active Substance: AVELUMAB
     Dates: start: 20180627, end: 20180919
  2. BAVENCIO [Suspect]
     Active Substance: AVELUMAB
     Indication: NEUROENDOCRINE CARCINOMA OF THE SKIN
     Dates: start: 20170822, end: 20171113

REACTIONS (3)
  - Multiple organ dysfunction syndrome [Fatal]
  - Restlessness [Unknown]
  - Confusional state [Unknown]

NARRATIVE: CASE EVENT DATE: 20180924
